FAERS Safety Report 15147875 (Version 1)
Quarter: 2018Q3

REPORT INFORMATION
  Report Type: Spontaneous
  Country: ES (occurrence: ES)
  Receive Date: 20180716
  Receipt Date: 20180716
  Transmission Date: 20181010
  Serious: Yes (Other)
  Sender: FDA-Public Use
  Company Number: ES-009507513-1807ESP005180

PATIENT
  Age: 52 Year
  Sex: Female

DRUGS (2)
  1. POSACONAZOLE [Suspect]
     Active Substance: POSACONAZOLE
     Indication: SYSTEMIC CANDIDA
     Dosage: UNK
     Route: 048
  2. MICAFUNGIN [Concomitant]
     Active Substance: MICAFUNGIN
     Indication: SYSTEMIC CANDIDA

REACTIONS (2)
  - Endocarditis [Unknown]
  - Drug ineffective [Unknown]

NARRATIVE: CASE EVENT DATE: 20170515
